FAERS Safety Report 4532091-1 (Version None)
Quarter: 2004Q4

REPORT INFORMATION
  Report Type: 
  Country: None (occurrence: None)
  Receive Date: 20041217
  Receipt Date: 20041209
  Transmission Date: 20050328
  Serious: Yes (Other)
  Sender: FDA-Public Use
  Company Number: 2004-0007716

PATIENT
  Age: 34 Year
  Sex: Female
  Weight: 55 kg

DRUGS (8)
  1. EMTRICITABINE (EMTRICITABINE) [Suspect]
     Indication: HIV INFECTION
     Dosage: 200 MG, 1 IN 1 D, ORAL
     Route: 048
     Dates: start: 20041006
  2. TENOFOVIR DISOPROXIL FUMARATE (TENOFOVIR DISOPROXIL FUMARATE) [Suspect]
     Indication: HIV INFECTION
     Dosage: 300 MG, 1 IN 1D, ORAL
     Route: 048
     Dates: start: 20041006
  3. GRISEOFULVIN (GRISEOFULVIN) (250 MG) [Suspect]
     Dates: start: 20041006, end: 20041103
  4. STOCRIN (EFAVIRENZ) [Concomitant]
  5. FEFOL (FEFOL) [Concomitant]
  6. BACTRIM [Concomitant]
  7. AMOXICILLIN [Concomitant]
  8. DICYNONE (ETAMSILATE) [Concomitant]

REACTIONS (2)
  - LEUKOPENIA [None]
  - NEUTROPENIA [None]
